FAERS Safety Report 19422915 (Version 3)
Quarter: 2022Q2

REPORT INFORMATION
  Report Type: Spontaneous
  Country: AR (occurrence: AR)
  Receive Date: 20210616
  Receipt Date: 20220628
  Transmission Date: 20220720
  Serious: No
  Sender: FDA-Public Use
  Company Number: AR-GLAXOSMITHKLINE-AR2021128104

PATIENT

DRUGS (3)
  1. ALBUTEROL SULFATE\BECLOMETHASONE DIPROPIONATE [Suspect]
     Active Substance: ALBUTEROL SULFATE\BECLOMETHASONE DIPROPIONATE
     Indication: Asthma
     Dosage: UNK UNK, WE 1 COUPLE TWICE
     Route: 055
     Dates: start: 2018
  2. VENTOLIN [Suspect]
     Active Substance: ALBUTEROL SULFATE
     Indication: Asthma
     Dosage: UNK UNK, QD 1 COUPLE
     Route: 055
     Dates: start: 2018
  3. LEVOTHYROXINE [Concomitant]
     Active Substance: LEVOTHYROXINE
     Indication: Product used for unknown indication
     Dosage: 1 DF, QD

REACTIONS (2)
  - Full blood count abnormal [Not Recovered/Not Resolved]
  - Product use issue [Unknown]
